FAERS Safety Report 18841161 (Version 1)
Quarter: 2021Q1

REPORT INFORMATION
  Report Type: Spontaneous
  Country: US (occurrence: US)
  Receive Date: 20210204
  Receipt Date: 20210204
  Transmission Date: 20210419
  Serious: No
  Sender: FDA-Public Use
  Company Number: US-CADILA HEALTHCARE LIMITED-US-ZYDUS-051010

PATIENT
  Sex: Female

DRUGS (1)
  1. CLOBETASOL PROPIONATE 0.05 PERCENTAGE CREAM [Suspect]
     Active Substance: CLOBETASOL PROPIONATE
     Indication: PRODUCT USED FOR UNKNOWN INDICATION
     Route: 061

REACTIONS (3)
  - Rash erythematous [Recovered/Resolved]
  - Rash [Recovered/Resolved]
  - Exfoliative rash [Recovered/Resolved]
